FAERS Safety Report 19323001 (Version 1)
Quarter: 2021Q2

REPORT INFORMATION
  Report Type: Spontaneous
  Country: CA (occurrence: CA)
  Receive Date: 20210528
  Receipt Date: 20210528
  Transmission Date: 20210717
  Serious: Yes (Hospitalization, Other)
  Sender: FDA-Public Use
  Company Number: CA-TEVA-2021-CA-1915426

PATIENT
  Age: 32 Year
  Sex: Female
  Weight: 70 kg

DRUGS (50)
  1. ABILIFY [Suspect]
     Active Substance: ARIPIPRAZOLE
     Route: 030
  2. ABILIFY [Suspect]
     Active Substance: ARIPIPRAZOLE
     Route: 048
  3. ABILIFY [Suspect]
     Active Substance: ARIPIPRAZOLE
     Route: 048
  4. ABILIFY [Suspect]
     Active Substance: ARIPIPRAZOLE
     Route: 065
  5. ABILIFY [Suspect]
     Active Substance: ARIPIPRAZOLE
     Indication: SCHIZOAFFECTIVE DISORDER DEPRESSIVE TYPE
     Dosage: 5 MILLIGRAM DAILY;
     Route: 048
  6. ABILIFY [Suspect]
     Active Substance: ARIPIPRAZOLE
     Indication: BIPOLAR DISORDER
     Route: 048
  7. ABILIFY [Suspect]
     Active Substance: ARIPIPRAZOLE
     Route: 030
  8. LAMICTAL [Suspect]
     Active Substance: LAMOTRIGINE
     Route: 065
  9. ABILIFY [Suspect]
     Active Substance: ARIPIPRAZOLE
     Route: 065
  10. ABILIFY [Suspect]
     Active Substance: ARIPIPRAZOLE
     Route: 065
  11. ABILIFY [Suspect]
     Active Substance: ARIPIPRAZOLE
     Route: 048
  12. ABILIFY [Suspect]
     Active Substance: ARIPIPRAZOLE
     Route: 065
  13. ABILIFY [Suspect]
     Active Substance: ARIPIPRAZOLE
     Route: 065
  14. ABILIFY [Suspect]
     Active Substance: ARIPIPRAZOLE
     Route: 030
  15. WELLBUTRIN [Suspect]
     Active Substance: BUPROPION HYDROCHLORIDE
     Indication: PRODUCT USED FOR UNKNOWN INDICATION
     Route: 065
  16. QUETIAPINE FUMARATE. [Suspect]
     Active Substance: QUETIAPINE FUMARATE
     Indication: PRODUCT USED FOR UNKNOWN INDICATION
     Route: 048
  17. ABILIFY [Suspect]
     Active Substance: ARIPIPRAZOLE
     Route: 065
  18. ABILIFY [Suspect]
     Active Substance: ARIPIPRAZOLE
     Route: 065
  19. ABILIFY [Suspect]
     Active Substance: ARIPIPRAZOLE
     Route: 030
  20. ABILIFY [Suspect]
     Active Substance: ARIPIPRAZOLE
     Route: 065
  21. ABILIFY [Suspect]
     Active Substance: ARIPIPRAZOLE
     Dosage: 5 MILLIGRAM DAILY;
     Route: 048
  22. ABILIFY [Suspect]
     Active Substance: ARIPIPRAZOLE
     Route: 030
  23. ABILIFY [Suspect]
     Active Substance: ARIPIPRAZOLE
     Indication: DEPRESSION
     Route: 065
  24. ABILIFY [Suspect]
     Active Substance: ARIPIPRAZOLE
     Route: 048
  25. ABILIFY [Suspect]
     Active Substance: ARIPIPRAZOLE
     Route: 065
  26. ABILIFY [Suspect]
     Active Substance: ARIPIPRAZOLE
     Route: 065
  27. LAMICTAL [Suspect]
     Active Substance: LAMOTRIGINE
     Indication: PRODUCT USED FOR UNKNOWN INDICATION
     Route: 065
  28. SERTRALINE HYDROCHLORIDE. [Concomitant]
     Active Substance: SERTRALINE HYDROCHLORIDE
     Indication: PRODUCT USED FOR UNKNOWN INDICATION
     Route: 065
  29. QUETIAPINE FUMARATE. [Suspect]
     Active Substance: QUETIAPINE FUMARATE
     Route: 048
  30. ABILIFY [Suspect]
     Active Substance: ARIPIPRAZOLE
     Route: 065
  31. ABILIFY [Suspect]
     Active Substance: ARIPIPRAZOLE
     Dosage: 5 MILLIGRAM DAILY;
     Route: 048
  32. ABILIFY [Suspect]
     Active Substance: ARIPIPRAZOLE
     Route: 048
  33. ABILIFY [Suspect]
     Active Substance: ARIPIPRAZOLE
     Route: 065
  34. ABILIFY [Suspect]
     Active Substance: ARIPIPRAZOLE
     Route: 048
  35. ABILIFY [Suspect]
     Active Substance: ARIPIPRAZOLE
     Route: 048
  36. ABILIFY [Suspect]
     Active Substance: ARIPIPRAZOLE
     Route: 048
  37. ABILIFY [Suspect]
     Active Substance: ARIPIPRAZOLE
     Route: 030
  38. ABILIFY [Suspect]
     Active Substance: ARIPIPRAZOLE
     Route: 048
  39. ABILIFY [Suspect]
     Active Substance: ARIPIPRAZOLE
     Route: 065
  40. LAMICTAL [Suspect]
     Active Substance: LAMOTRIGINE
     Route: 065
  41. QUETIAPINE FUMARATE. [Suspect]
     Active Substance: QUETIAPINE FUMARATE
     Route: 048
  42. ABILIFY [Suspect]
     Active Substance: ARIPIPRAZOLE
     Route: 065
  43. ABILIFY [Suspect]
     Active Substance: ARIPIPRAZOLE
     Route: 048
  44. ABILIFY [Suspect]
     Active Substance: ARIPIPRAZOLE
     Route: 030
  45. LAMICTAL [Suspect]
     Active Substance: LAMOTRIGINE
     Route: 065
  46. ABILIFY [Suspect]
     Active Substance: ARIPIPRAZOLE
     Indication: SCHIZOPHRENIA
     Dosage: 5 MILLIGRAM DAILY;
     Route: 048
  47. ABILIFY [Suspect]
     Active Substance: ARIPIPRAZOLE
     Route: 048
  48. ABILIFY [Suspect]
     Active Substance: ARIPIPRAZOLE
     Route: 030
  49. ABILIFY [Suspect]
     Active Substance: ARIPIPRAZOLE
     Route: 065
  50. SERTRALINE HYDROCHLORIDE. [Concomitant]
     Active Substance: SERTRALINE HYDROCHLORIDE
     Route: 065

REACTIONS (7)
  - Dizziness [Not Recovered/Not Resolved]
  - Anxiety [Not Recovered/Not Resolved]
  - Infarction [Not Recovered/Not Resolved]
  - Vertigo [Not Recovered/Not Resolved]
  - Headache [Not Recovered/Not Resolved]
  - Nausea [Not Recovered/Not Resolved]
  - Off label use [Not Recovered/Not Resolved]
